FAERS Safety Report 10057572 (Version 1)
Quarter: 2014Q2

REPORT INFORMATION
  Report Type: Spontaneous
  Country: US (occurrence: US)
  Receive Date: 20140404
  Receipt Date: 20140404
  Transmission Date: 20141212
  Serious: Yes (Other)
  Sender: FDA-Public Use
  Company Number: US-AMGEN INC.-USASP2014022394

PATIENT
  Age: 84 Year
  Sex: Female

DRUGS (8)
  1. PROLIA [Suspect]
     Indication: OSTEOPOROSIS POSTMENOPAUSAL
     Dosage: UNK
     Route: 065
  2. NEXIUM                             /01479302/ [Concomitant]
  3. DILTIAZEM [Concomitant]
  4. FLECAINIDE [Concomitant]
  5. ASPIRIN [Concomitant]
     Dosage: 325 MG, UNK
  6. CITRACAL PLUS D [Concomitant]
  7. GLUCOSAMINE + CHONDROITIN          /01430901/ [Concomitant]
     Dosage: ONE, QD
  8. DIGESTIVE ADVANTAGE                /06771401/ [Concomitant]

REACTIONS (3)
  - Atrial tachycardia [Unknown]
  - Pain in jaw [Unknown]
  - Anaemia [Unknown]
